FAERS Safety Report 25019897 (Version 1)
Quarter: 2025Q1

REPORT INFORMATION
  Report Type: Spontaneous
  Country: CN (occurrence: CN)
  Receive Date: 20250227
  Receipt Date: 20250227
  Transmission Date: 20250409
  Serious: Yes (Other)
  Sender: NOVARTIS
  Company Number: CN-002147023-NVSC2025CN031061

PATIENT
  Age: 52 Year
  Sex: Male

DRUGS (1)
  1. SECUKINUMAB [Suspect]
     Active Substance: SECUKINUMAB
     Indication: Ankylosing spondylitis
     Dosage: 150.000 MG, Q4W
     Route: 058
     Dates: start: 20241127, end: 20250113

REACTIONS (9)
  - Balanoposthitis [Unknown]
  - Penile swelling [Unknown]
  - Penile exfoliation [Unknown]
  - Penile erosion [Unknown]
  - Rash [Unknown]
  - Pruritus [Unknown]
  - Condition aggravated [Unknown]
  - Effusion [Unknown]
  - Swelling [Unknown]

NARRATIVE: CASE EVENT DATE: 20250218
